FAERS Safety Report 18937294 (Version 1)
Quarter: 2021Q1

REPORT INFORMATION
  Report Type: Spontaneous
  Country: US (occurrence: US)
  Receive Date: 20210225
  Receipt Date: 20210225
  Transmission Date: 20210420
  Serious: No
  Sender: FDA-Public Use
  Company Number: US-BAUSCH-BL-2021-005604

PATIENT
  Age: 96 Year
  Sex: Female
  Weight: 65.83 kg

DRUGS (4)
  1. ALAWAY [Suspect]
     Active Substance: KETOTIFEN FUMARATE
     Indication: PRODUCT USE IN UNAPPROVED INDICATION
  2. LEVOTHYROXINE. [Concomitant]
     Active Substance: LEVOTHYROXINE
     Indication: PRODUCT USED FOR UNKNOWN INDICATION
     Route: 048
  3. OCUVITE (UNSPECIFIED) [Concomitant]
     Indication: PRODUCT USED FOR UNKNOWN INDICATION
     Route: 048
  4. ALAWAY [Suspect]
     Active Substance: KETOTIFEN FUMARATE
     Indication: LACRIMATION INCREASED
     Dosage: SINGLE
     Route: 047
     Dates: start: 20210121, end: 20210121

REACTIONS (3)
  - Eye irritation [Recovered/Resolved]
  - Vision blurred [Recovered/Resolved]
  - Product use in unapproved indication [Unknown]

NARRATIVE: CASE EVENT DATE: 20210121
